FAERS Safety Report 6463820-8 (Version None)
Quarter: 2009Q4

REPORT INFORMATION
  Report Type: 
  Country: None (occurrence: None)
  Receive Date: 20091201
  Receipt Date: 20091126
  Transmission Date: 20100525
  Serious: Yes (Life-Threatening, Hospitalization)
  Sender: FDA-Public Use
  Company Number: FR-JNJFOC-20091107857

PATIENT
  Age: 53 Year
  Sex: Male

DRUGS (1)
  1. TAVANIC [Suspect]
     Indication: DRUG USE FOR UNKNOWN INDICATION
     Route: 048
     Dates: start: 20091102, end: 20091102

REACTIONS (6)
  - CHEST DISCOMFORT [None]
  - CONTRAINDICATION TO MEDICAL TREATMENT [None]
  - HYPERSENSITIVITY [None]
  - RASH [None]
  - RESPIRATORY DISTRESS [None]
  - TACHYCARDIA [None]
